FAERS Safety Report 5343412-4 (Version None)
Quarter: 2007Q2

REPORT INFORMATION
  Report Type: 
  Country: None (occurrence: None)
  Receive Date: 20070531
  Receipt Date: 20070516
  Transmission Date: 20071010
  Serious: Yes (Hospitalization)
  Sender: FDA-Public Use
  Company Number: 100#08#2007-01731

PATIENT
  Age: 74 Year
  Sex: Female

DRUGS (2)
  1. AMITRIPTYLINE HCL [Suspect]
     Indication: DEPRESSION
     Dosage: 10 MG (TWICE DAILY)
  2. BENORYLATE (BENORILATE)  (BENORILATE) [Concomitant]

REACTIONS (14)
  - BLOOD PRESSURE INCREASED [None]
  - CONDITION AGGRAVATED [None]
  - CONSTIPATION [None]
  - CYANOSIS [None]
  - DEEP VEIN THROMBOSIS [None]
  - DIVERTICULAR PERFORATION [None]
  - FAECALOMA [None]
  - FAECES HARD [None]
  - HAEMATOCHEZIA [None]
  - HEART RATE INCREASED [None]
  - LARGE INTESTINE PERFORATION [None]
  - PALLOR [None]
  - PERITONITIS [None]
  - POSTOPERATIVE WOUND INFECTION [None]
